FAERS Safety Report 10311991 (Version 1)
Quarter: 2014Q3

REPORT INFORMATION
  Report Type: Spontaneous
  Country: JP (occurrence: JP)
  Receive Date: 20140717
  Receipt Date: 20140717
  Transmission Date: 20150326
  Serious: Yes (Other)
  Sender: FDA-Public Use
  Company Number: JP-MYLANLABS-2014S1016372

PATIENT
  Age: 84 Year
  Sex: Male

DRUGS (4)
  1. PREDNISOLONE. [Suspect]
     Active Substance: PREDNISOLONE
     Indication: STILL^S DISEASE ADULT ONSET
     Dosage: 20 MG/DAY AS A SHORT COURSE
     Route: 065
     Dates: start: 201105
  2. PREDNISOLONE. [Suspect]
     Active Substance: PREDNISOLONE
     Indication: STILL^S DISEASE ADULT ONSET
     Dosage: 15 MG/DAY
     Route: 065
     Dates: start: 201107
  3. PREDNISOLONE. [Suspect]
     Active Substance: PREDNISOLONE
     Indication: STILL^S DISEASE ADULT ONSET
     Dosage: 30 MG/DAY
     Route: 065
     Dates: start: 201107
  4. METHYLPREDNISOLONE [Suspect]
     Active Substance: METHYLPREDNISOLONE
     Indication: STILL^S DISEASE ADULT ONSET
     Dosage: 125 MG/DAY
     Route: 065
     Dates: start: 201108

REACTIONS (3)
  - Diabetes mellitus [Recovering/Resolving]
  - Hypogammaglobulinaemia [Recovered/Resolved]
  - Myopathy [Recovered/Resolved]
